FAERS Safety Report 9271373 (Version 1)
Quarter: 2013Q2

REPORT INFORMATION
  Report Type: Spontaneous
  Country: US (occurrence: US)
  Receive Date: 20130506
  Receipt Date: 20130506
  Transmission Date: 20140414
  Serious: No
  Sender: FDA-Public Use
  Company Number: US-PFIZER INC-2013136402

PATIENT
  Sex: Female

DRUGS (1)
  1. VISTARIL [Suspect]
     Dosage: 50 MG, UNK (50 MG WITH 2 QUANTITIES)

REACTIONS (1)
  - Vomiting [Unknown]
